FAERS Safety Report 12836166 (Version 7)
Quarter: 2017Q2

REPORT INFORMATION
  Report Type: Report from Study
  Country: US (occurrence: US)
  Receive Date: 20161011
  Receipt Date: 20170524
  Transmission Date: 20170830
  Serious: Yes (Death, Hospitalization)
  Sender: FDA-Public Use
  Company Number: US-009507513-1112USA00188

PATIENT
  Age: 79 Year
  Sex: Male
  Weight: 94.98 kg

DRUGS (25)
  1. PRINIVIL [Suspect]
     Active Substance: LISINOPRIL
     Indication: HYPERTENSION
     Dosage: 40 MG, QD
     Route: 048
     Dates: start: 200006, end: 20111029
  2. ASPIRIN. [Concomitant]
     Active Substance: ASPIRIN
     Indication: CORONARY ARTERY DISEASE
     Dosage: 325 MG, QD
     Route: 048
     Dates: start: 200606
  3. POTASSIUM (UNSPECIFIED) [Concomitant]
     Active Substance: POTASSIUM
     Indication: ROUTINE HEALTH MAINTENANCE
     Dosage: 16 MEQ, QD
     Route: 048
     Dates: start: 200806
  4. NIASPAN [Concomitant]
     Active Substance: NIACIN
     Indication: HYPERLIPIDAEMIA
     Dosage: 500 MG, QD
     Route: 048
     Dates: start: 200006
  5. LEVEMIR [Concomitant]
     Active Substance: INSULIN DETEMIR
     Indication: DIABETES MELLITUS
     Dosage: DOSE: 78 UNITS, QD, ROUTE: INJECTION
     Dates: start: 200806
  6. DEXAMETHASONE. [Concomitant]
     Active Substance: DEXAMETHASONE
     Indication: PROPHYLAXIS
     Dosage: TOTAL DAILY DOSE: 20 MG,FORMULATION:LIQUID
     Route: 042
     Dates: start: 20110630
  7. LOPRESSOR [Concomitant]
     Active Substance: METOPROLOL TARTRATE
     Indication: HYPERTENSION
     Dosage: TOTAL DAILY DOSE: 100 MG,
     Route: 048
     Dates: start: 200006
  8. VARICELLA-ZOSTER VIRUS VACCINE INACTIVATED (OKA/MERCK) [Suspect]
     Active Substance: VARICELLA-ZOSTER VIRUS STRAIN OKA/MERCK LIVE ANTIGEN
     Indication: PROPHYLAXIS
     Route: 058
     Dates: start: 20110915, end: 20110915
  9. TYLENOL PM [Concomitant]
     Active Substance: ACETAMINOPHEN\DIPHENHYDRAMINE
     Indication: SLEEP DISORDER
     Dosage: TOTAL DAILY DOSE: 500 MG,
     Route: 048
     Dates: start: 201012
  10. PALONOSETRON HYDROCHLORIDE. [Concomitant]
     Active Substance: PALONOSETRON HYDROCHLORIDE
     Indication: ANTIEMETIC SUPPORTIVE CARE
     Dosage: TOTAL DAILY DOSE: 0.25 MG,
     Route: 042
     Dates: start: 20110630
  11. DECADRON [Concomitant]
     Active Substance: DEXAMETHASONE
     Indication: PREMEDICATION
     Dosage: FORMULATION :12 MG, FORMULATION: LIQUID
     Route: 042
     Dates: start: 20110127
  12. NAVELBINE [Concomitant]
     Active Substance: VINORELBINE TARTRATE
     Indication: CHEMOTHERAPY
     Dosage: TOTAL DAILY DOSE: 25 MG/M2,
     Route: 042
     Dates: start: 20111027, end: 20111027
  13. PRAZOSIN. [Concomitant]
     Active Substance: PRAZOSIN
     Indication: HYPERTENSION
     Dosage: TOTAL DAILY DOSE: 2 MG,
     Route: 048
     Dates: start: 200806
  14. ALOXI [Concomitant]
     Active Substance: PALONOSETRON HYDROCHLORIDE
     Indication: PREMEDICATION
     Dosage: 0.25 MG, QM
     Route: 042
     Dates: start: 20110127
  15. GEMCITABINE [Concomitant]
     Active Substance: GEMCITABINE\GEMCITABINE HYDROCHLORIDE
     Indication: SQUAMOUS CELL CARCINOMA OF LUNG
     Dosage: TOTAL DAILY DOSE: 1000MG PER SQUARE METER FREQUENCY: TWO WEEKS ON AND TWO WEEKS OFF
     Route: 042
     Dates: start: 20110127
  16. CARBOPLATIN. [Concomitant]
     Active Substance: CARBOPLATIN
     Indication: SQUAMOUS CELL CARCINOMA OF LUNG
     Dosage: TOTAL DAILY DOSE: 5 UNIT
     Route: 042
     Dates: start: 20110127
  17. VARICELLA-ZOSTER VIRUS VACCINE INACTIVATED (OKA/MERCK) [Suspect]
     Active Substance: VARICELLA-ZOSTER VIRUS STRAIN OKA/MERCK LIVE ANTIGEN
     Route: 058
     Dates: start: 20111013, end: 20111013
  18. ZOCOR [Concomitant]
     Active Substance: SIMVASTATIN
     Indication: BLOOD CHOLESTEROL INCREASED
     Dosage: 80 MG, QD
     Route: 048
     Dates: start: 200006
  19. VALIUM [Concomitant]
     Active Substance: DIAZEPAM
     Indication: ANXIETY
     Dosage: 5 MG, QD
     Route: 048
     Dates: start: 201012
  20. ADVAIR HFA [Concomitant]
     Active Substance: FLUTICASONE PROPIONATE\SALMETEROL XINAFOATE
     Indication: CHRONIC OBSTRUCTIVE PULMONARY DISEASE
     Dosage: 250 MICROGRAM, QD, FORMULATION: INHALANT
     Route: 055
     Dates: start: 201012
  21. INDAPAMIDE. [Concomitant]
     Active Substance: INDAPAMIDE
     Indication: FLUID RETENTION
     Dosage: 2.5 MG, QD
     Route: 048
     Dates: start: 200606
  22. AVODART [Concomitant]
     Active Substance: DUTASTERIDE
     Indication: DIABETES MELLITUS
     Dosage: 0.5 MG, QD
     Route: 048
     Dates: start: 200706
  23. NORVASC [Concomitant]
     Active Substance: AMLODIPINE BESYLATE
     Indication: HYPERTENSION
     Dosage: TOTAL DAILY DOSE:5 MG
     Route: 048
     Dates: start: 200806
  24. NOVOLOG [Concomitant]
     Active Substance: INSULIN ASPART
     Indication: DIABETES MELLITUS
     Dosage: 7 UNITS, ROUTE: INJECTION, QD
     Dates: start: 200706
  25. VITAMIN D [Concomitant]
     Active Substance: CHOLECALCIFEROL
     Indication: ROUTINE HEALTH MAINTENANCE
     Dosage: 1000 IU, QD
     Route: 048
     Dates: start: 20110823

REACTIONS (2)
  - Angioedema [Recovered/Resolved]
  - Squamous cell carcinoma of lung [Fatal]

NARRATIVE: CASE EVENT DATE: 20111028
